FAERS Safety Report 15592585 (Version 1)
Quarter: 2018Q4

REPORT INFORMATION
  Report Type: Spontaneous
  Country: US (occurrence: US)
  Receive Date: 20181106
  Receipt Date: 20181106
  Transmission Date: 20190205
  Serious: No
  Sender: FDA-Public Use
  Company Number: US-KVK-TECH, INC-2058496

PATIENT
  Age: 83 Year
  Sex: Female
  Weight: 100.91 kg

DRUGS (4)
  1. IRON SUPPLEMENT [Concomitant]
     Active Substance: IRON
     Route: 065
  2. DIETHYLPROPION HYDROCHLORIDE. [Suspect]
     Active Substance: DIETHYLPROPION HYDROCHLORIDE
     Indication: WEIGHT DECREASED
     Route: 048
     Dates: start: 201808
  3. VITAMIN D [Concomitant]
     Active Substance: CHOLECALCIFEROL
     Route: 065
  4. XANAX [Concomitant]
     Active Substance: ALPRAZOLAM
     Route: 065

REACTIONS (4)
  - Drug ineffective [Not Recovered/Not Resolved]
  - Product taste abnormal [Not Recovered/Not Resolved]
  - Product physical issue [Not Recovered/Not Resolved]
  - Intentional dose omission [Recovered/Resolved]

NARRATIVE: CASE EVENT DATE: 2018
